FAERS Safety Report 7827519-5 (Version None)
Quarter: 2011Q4

REPORT INFORMATION
  Report Type: 
  Country: None (occurrence: None)
  Receive Date: 20111020
  Receipt Date: 20111011
  Transmission Date: 20120403
  Serious: Yes (Other)
  Sender: FDA-Public Use
  Company Number: PHFR2010IE02029

PATIENT
  Sex: Male
  Weight: 86.6 kg

DRUGS (10)
  1. CLOZARIL [Suspect]
     Dosage: 750 MG, QD
     Route: 048
     Dates: start: 20090408
  2. KEPPRA [Suspect]
     Indication: CONVULSION
     Dosage: 1500 MG, BID
     Dates: start: 20090101
  3. HALOPERIDOL [Concomitant]
     Dosage: 5 MG, TID
  4. AMISULPRIDE [Suspect]
     Route: 048
  5. CLOZARIL [Suspect]
     Indication: SCHIZOPHRENIA, PARANOID TYPE
     Dosage: 900 MG, QD
     Route: 048
     Dates: start: 20090408
  6. IMMUNOGLOBULINS [Concomitant]
  7. OLANZAPINE [Concomitant]
  8. QUETIAPINE [Concomitant]
  9. VALPROATE SODIUM [Concomitant]
  10. RISPERIDONE [Concomitant]

REACTIONS (8)
  - MYOCLONUS [None]
  - DYSTONIA [None]
  - METABOLIC DISORDER [None]
  - PLATELET COUNT DECREASED [None]
  - MEAN CELL HAEMOGLOBIN CONCENTRATION [None]
  - THROMBOCYTOPENIA [None]
  - GRAND MAL CONVULSION [None]
  - DRUG INEFFECTIVE [None]
